FAERS Safety Report 22071456 (Version 1)
Quarter: 2023Q1

REPORT INFORMATION
  Report Type: Report from Study
  Country: FR (occurrence: FR)
  Receive Date: 20230307
  Receipt Date: 20230307
  Transmission Date: 20230418
  Serious: No
  Sender: FDA-Public Use
  Company Number: FR-KARYOPHARM-2023KPT000766

PATIENT

DRUGS (1)
  1. SELINEXOR [Suspect]
     Active Substance: SELINEXOR
     Indication: Product used for unknown indication
     Dosage: UNK
     Route: 048
     Dates: end: 202208

REACTIONS (2)
  - Dyspepsia [Unknown]
  - Therapy interrupted [Unknown]
